FAERS Safety Report 7932956-4 (Version None)
Quarter: 2011Q4

REPORT INFORMATION
  Report Type: 
  Country: None (occurrence: None)
  Receive Date: 20111122
  Receipt Date: 20111116
  Transmission Date: 20120403
  Serious: No
  Sender: FDA-Public Use
  Company Number: US-PFIZER INC-2011281229

PATIENT
  Sex: Female
  Weight: 91.61 kg

DRUGS (1)
  1. LYRICA [Suspect]
     Indication: FIBROMYALGIA
     Dosage: 50 MG, 1X/DAY
     Route: 048
     Dates: start: 20100101

REACTIONS (5)
  - PRURITUS [None]
  - GAIT DISTURBANCE [None]
  - SEDATION [None]
  - URTICARIA [None]
  - BALANCE DISORDER [None]
